FAERS Safety Report 10788482 (Version 2)
Quarter: 2015Q1

REPORT INFORMATION
  Report Type: Spontaneous
  Country: US (occurrence: US)
  Receive Date: 20150212
  Receipt Date: 20150224
  Transmission Date: 20150721
  Serious: Yes (Hospitalization, Other)
  Sender: FDA-Public Use
  Company Number: US-UCBSA-2015003740

PATIENT
  Sex: Male
  Weight: 103 kg

DRUGS (8)
  1. FENTANYL. [Concomitant]
     Active Substance: FENTANYL
     Indication: PAIN
     Dosage: 75 ?G, QOD
     Route: 062
  2. NEUPRO [Suspect]
     Active Substance: ROTIGOTINE
     Indication: RESTLESS LEGS SYNDROME
     Dosage: 6 MG, ONCE DAILY (QD), 3-4 YRS AGO STARTED
     Route: 062
  3. AMPHETAMINE SALTS [Concomitant]
     Active Substance: AMPHETAMINE ASPARTATE\AMPHETAMINE SULFATE\DEXTROAMPHETAMINE SACCHARATE\DEXTROAMPHETAMINE SULFATE
     Indication: DISTURBANCE IN ATTENTION
     Dosage: 20 MG, 2X/DAY (BID)
     Route: 048
  4. AMPHETAMINE SALTS [Concomitant]
     Active Substance: AMPHETAMINE ASPARTATE\AMPHETAMINE SULFATE\DEXTROAMPHETAMINE SACCHARATE\DEXTROAMPHETAMINE SULFATE
     Indication: PSYCHOTHERAPY
  5. HYDROCODONE [Concomitant]
     Active Substance: HYDROCODONE
     Indication: SPINAL COLUMN STENOSIS
     Dosage: UNK
     Dates: start: 2015
  6. TESTOSTERONE. [Concomitant]
     Active Substance: TESTOSTERONE
     Indication: BLOOD TESTOSTERONE DECREASED
     Dosage: 0.5 ML, EV 2 WEEKS(QOW)
  7. MORPHINE [Concomitant]
     Active Substance: MORPHINE
     Indication: PAIN
     Dosage: UNK
     Dates: start: 2015
  8. DITROPAN [Concomitant]
     Active Substance: OXYBUTYNIN CHLORIDE
     Indication: URINARY INCONTINENCE
     Dosage: 10 MG, ONCE DAILY (QD) 1-2 YRS AGO STARTED
     Route: 048

REACTIONS (3)
  - Spinal column stenosis [Recovering/Resolving]
  - Deafness [Not Recovered/Not Resolved]
  - Onychomycosis [Recovering/Resolving]
